FAERS Safety Report 5609556-4 (Version None)
Quarter: 2008Q1

REPORT INFORMATION
  Report Type: 
  Country: None (occurrence: None)
  Receive Date: 20080131
  Receipt Date: 20080122
  Transmission Date: 20080703
  Serious: Yes (Other)
  Sender: FDA-Public Use
  Company Number: US-PFIZER INC-2007089003

PATIENT
  Sex: Male
  Weight: 68.181 kg

DRUGS (3)
  1. CHANTIX [Suspect]
     Indication: SMOKING CESSATION THERAPY
     Dates: start: 20070930, end: 20071004
  2. LEXAPRO [Concomitant]
     Indication: DEPRESSION
  3. XANAX [Concomitant]
     Indication: DEPRESSION

REACTIONS (11)
  - ABNORMAL DREAMS [None]
  - AMNESIA [None]
  - DIZZINESS [None]
  - DYSKINESIA [None]
  - FALL [None]
  - MEMORY IMPAIRMENT [None]
  - MUSCLE TWITCHING [None]
  - PERSONALITY CHANGE [None]
  - SOMNAMBULISM [None]
  - URINARY INCONTINENCE [None]
  - VISUAL DISTURBANCE [None]
